FAERS Safety Report 5188242-1 (Version None)
Quarter: 2006Q4

REPORT INFORMATION
  Report Type: 
  Country: None (occurrence: None)
  Receive Date: 20061221
  Receipt Date: 20061129
  Transmission Date: 20070319
  Serious: Yes (Other)
  Sender: FDA-Public Use
  Company Number: US-GLAXOSMITHKLINE-A0629468A

PATIENT
  Age: 73 Year
  Sex: Male

DRUGS (18)
  1. ADVAIR DISKUS 100/50 [Suspect]
     Indication: CHRONIC OBSTRUCTIVE PULMONARY DISEASE
     Dosage: 1PUFF TWICE PER DAY
     Route: 055
     Dates: start: 20000101
  2. ASPIRIN [Concomitant]
  3. XANAX [Concomitant]
  4. ALTACE [Concomitant]
  5. DIGITEK [Concomitant]
  6. LASIX [Concomitant]
  7. K-DUR 10 [Concomitant]
  8. NITROLINGUAL [Concomitant]
  9. NAPROXEN SODIUM [Concomitant]
  10. ZOCOR [Concomitant]
  11. AMIODARONE [Concomitant]
  12. ALPHAGAN [Concomitant]
  13. COMBIVENT [Concomitant]
  14. AVODART [Concomitant]
  15. FOSAMAX [Concomitant]
  16. ZETIA [Concomitant]
  17. XALATAN [Concomitant]
  18. OXYGEN [Concomitant]

REACTIONS (3)
  - DYSPNOEA [None]
  - MYOCARDIAL INFARCTION [None]
  - PHARMACEUTICAL PRODUCT COMPLAINT [None]
